FAERS Safety Report 9292033 (Version 1)
Quarter: 2013Q2

REPORT INFORMATION
  Report Type: Spontaneous
  Country: US (occurrence: US)
  Receive Date: 20130516
  Receipt Date: 20130516
  Transmission Date: 20140414
  Serious: No
  Sender: FDA-Public Use
  Company Number: US-PFIZER INC-2013148557

PATIENT
  Sex: Female

DRUGS (1)
  1. LYRICA [Suspect]
     Dosage: UNK
     Dates: end: 2013

REACTIONS (4)
  - Heart rate increased [Unknown]
  - Agitation [Unknown]
  - Nausea [Unknown]
  - Hyperhidrosis [Unknown]
